FAERS Safety Report 11397673 (Version 9)
Quarter: 2016Q2

REPORT INFORMATION
  Report Type: Report from Study
  Country: US (occurrence: US)
  Receive Date: 20150819
  Receipt Date: 20160614
  Transmission Date: 20160815
  Serious: Yes (Death, Hospitalization, Other)
  Sender: FDA-Public Use
  Company Number: US-ACTELION-A-NJ2015-122614

PATIENT
  Age: 92 Year
  Sex: Female

DRUGS (3)
  1. SILDENAFIL. [Concomitant]
     Active Substance: SILDENAFIL
  2. ELIQUIS [Concomitant]
     Active Substance: APIXABAN
  3. OPSUMIT [Suspect]
     Active Substance: MACITENTAN
     Indication: PULMONARY ARTERIAL HYPERTENSION
     Dosage: 10 MG, QD
     Route: 048
     Dates: start: 20150807, end: 20160530

REACTIONS (13)
  - Fluid retention [Unknown]
  - No therapeutic response [Unknown]
  - Dyspnoea [Unknown]
  - Dyspnoea exertional [Unknown]
  - Productive cough [Unknown]
  - Anaemia [Unknown]
  - Increased upper airway secretion [Unknown]
  - Death [Fatal]
  - Cardiac pacemaker insertion [Unknown]
  - Respiratory tract congestion [Unknown]
  - Wheezing [Unknown]
  - Glaucoma [Unknown]
  - Fatigue [Unknown]

NARRATIVE: CASE EVENT DATE: 20160530
